FAERS Safety Report 18756266 (Version 1)
Quarter: 2021Q1

REPORT INFORMATION
  Report Type: Spontaneous
  Country: US (occurrence: US)
  Receive Date: 20210119
  Receipt Date: 20210119
  Transmission Date: 20210419
  Serious: Yes (Other)
  Sender: FDA-Public Use
  Company Number: US-JNJFOC-20210125270

PATIENT
  Sex: Male
  Weight: 136.2 kg

DRUGS (1)
  1. STELARA [Suspect]
     Active Substance: USTEKINUMAB
     Indication: PSORIATIC ARTHROPATHY
     Dosage: DOSE GIVEN AS 80
     Route: 058

REACTIONS (3)
  - Spinal operation [Unknown]
  - Off label use [Unknown]
  - Incorrect dose administered [Unknown]
